FAERS Safety Report 22193300 (Version 1)
Quarter: 2023Q2

REPORT INFORMATION
  Report Type: Spontaneous
  Country: GR (occurrence: GR)
  Receive Date: 20230410
  Receipt Date: 20230410
  Transmission Date: 20230721
  Serious: Yes (Life-Threatening)
  Sender: FDA-Public Use
  Company Number: GR-MYLANLABS-2023M1037733

PATIENT
  Age: 20 Year
  Sex: Female

DRUGS (6)
  1. VANCOMYCIN [Suspect]
     Active Substance: VANCOMYCIN
     Indication: Abscess
     Dosage: UNK
     Route: 042
  2. CLARITHROMYCIN [Suspect]
     Active Substance: CLARITHROMYCIN
     Indication: Haemoptysis
     Dosage: UNK
     Route: 065
  3. CEFEPIME [Suspect]
     Active Substance: CEFEPIME HYDROCHLORIDE
     Indication: Abscess
     Dosage: UNK
     Route: 042
  4. CLINDAMYCIN [Suspect]
     Active Substance: CLINDAMYCIN
     Indication: Abscess
     Dosage: UNK
     Route: 042
  5. RIFAMYCIN [Suspect]
     Active Substance: RIFAMYCIN
     Indication: Haemoptysis
     Dosage: UNK
     Route: 065
  6. ERYTHROMYCIN [Suspect]
     Active Substance: ERYTHROMYCIN
     Indication: Haemoptysis
     Dosage: UNK
     Route: 065

REACTIONS (1)
  - Drug ineffective [Unknown]
